FAERS Safety Report 11152762 (Version 2)
Quarter: 2015Q4

REPORT INFORMATION
  Report Type: Spontaneous
  Country: US (occurrence: US)
  Receive Date: 20150601
  Receipt Date: 20151230
  Transmission Date: 20160304
  Serious: Yes (Hospitalization)
  Sender: FDA-Public Use
  Company Number: US-BAYER-2015-291133

PATIENT
  Age: 35 Year
  Sex: Female
  Weight: 84.4 kg

DRUGS (18)
  1. SPIRONOLACTONE. [Concomitant]
     Active Substance: SPIRONOLACTONE
     Dosage: 50 MG, Q AM
     Route: 048
     Dates: start: 20081010, end: 20101029
  2. YASMIN [Suspect]
     Active Substance: DROSPIRENONE\ETHINYL ESTRADIOL
     Dosage: UNK
     Dates: start: 200801, end: 200810
  3. CLONIDINE. [Concomitant]
     Active Substance: CLONIDINE
  4. CYCLOBENZAPRINE [Concomitant]
     Active Substance: CYCLOBENZAPRINE
     Dosage: 10 MG, Q HS
     Route: 048
     Dates: start: 20050915, end: 20080706
  5. IBUPROFEN. [Concomitant]
     Active Substance: IBUPROFEN
     Dosage: 600 MG, QD
     Route: 048
     Dates: start: 20050915, end: 20100410
  6. MINOCYCLINE [Concomitant]
     Active Substance: MINOCYCLINE\MINOCYCLINE HYDROCHLORIDE
     Dosage: 100 TO 135 MG QD
     Route: 048
     Dates: start: 20060620, end: 20100801
  7. SKELAXIN [Concomitant]
     Active Substance: METAXALONE
     Dosage: 800 MG, TID
     Route: 048
     Dates: start: 20080818
  8. FLUCONAZOLE. [Concomitant]
     Active Substance: FLUCONAZOLE
     Dosage: 100 TO 150 MG QD
     Route: 048
     Dates: start: 20020111, end: 20100610
  9. EXCEDRIN EXTRA STRENGTH [Concomitant]
     Active Substance: ACETAMINOPHEN\ASPIRIN\CAFFEINE
     Indication: HEADACHE
  10. GIANVI [Suspect]
     Active Substance: DROSPIRENONE\ETHINYL ESTRADIOL
     Dosage: UNK
     Dates: start: 200801, end: 200810
  11. ACETAMINOPHEN. [Concomitant]
     Active Substance: ACETAMINOPHEN
     Dosage: 500 MG, 2 TID
     Route: 048
     Dates: start: 20040312, end: 20080830
  12. MINOCIN [Concomitant]
     Active Substance: MINOCYCLINE HYDROCHLORIDE
     Indication: ACNE
  13. YAZ [Suspect]
     Active Substance: DROSPIRENONE\ETHINYL ESTRADIOL
     Dosage: UNK
     Dates: start: 200801, end: 200810
  14. OCELLA [Suspect]
     Active Substance: DROSPIRENONE\ETHINYL ESTRADIOL
     Dosage: UNK
     Dates: start: 200801, end: 200810
  15. HYDROCHLOROTHIAZIDE. [Concomitant]
     Active Substance: HYDROCHLOROTHIAZIDE
     Dosage: 25 MG, Q AM
     Route: 048
     Dates: start: 20080706
  16. ZIANA [Concomitant]
     Active Substance: CLINDAMYCIN PHOSPHATE\TRETINOIN
     Dosage: 30 G, APPLY Q PM
     Dates: start: 20080822
  17. DOXYCYCLINE. [Concomitant]
     Active Substance: DOXYCYCLINE
     Dosage: 100 MG, QD
     Route: 048
     Dates: start: 20040102, end: 20080927
  18. CLINDAMYCIN [Concomitant]
     Active Substance: CLINDAMYCIN\CLINDAMYCIN PHOSPHATE
     Dosage: 60 G, Q AM
     Dates: start: 20081010

REACTIONS (4)
  - Injury [Recovered/Resolved]
  - Transient ischaemic attack [Recovered/Resolved]
  - Emotional distress [None]
  - Pain [Recovered/Resolved]

NARRATIVE: CASE EVENT DATE: 200810
